FAERS Safety Report 21022110 (Version 1)
Quarter: 2022Q2

REPORT INFORMATION
  Report Type: Report from Study
  Country: CA (occurrence: CA)
  Receive Date: 20220629
  Receipt Date: 20220629
  Transmission Date: 20220721
  Serious: Yes (Other)
  Sender: FDA-Public Use
  Company Number: CA-BAYER-2022A087370

PATIENT
  Sex: Male

DRUGS (1)
  1. EYLEA [Suspect]
     Active Substance: AFLIBERCEPT
     Indication: Retinal vein occlusion
     Dosage: UNK, SOLUTION FOR INJECTION
     Route: 031
     Dates: start: 202204

REACTIONS (1)
  - Hyphaema [Not Recovered/Not Resolved]

NARRATIVE: CASE EVENT DATE: 20220621
